FAERS Safety Report 4459311-6 (Version None)
Quarter: 2004Q3

REPORT INFORMATION
  Report Type: 
  Country: None (occurrence: None)
  Receive Date: 20040922
  Receipt Date: 20040922
  Transmission Date: 20050211
  Serious: Yes (Disabling, Other)
  Sender: FDA-Public Use
  Company Number: None

PATIENT
  Age: 28 Year
  Sex: Female
  Weight: 65.7716 kg

DRUGS (2)
  1. SWAYERS CONTROLLED 20% DEET SAWYERS [Suspect]
     Indication: ARTHROPOD BITE
     Dosage: 20% DEET BID TOPICAL
     Route: 061
     Dates: start: 20040622, end: 20040702
  2. SWAYERS CONTROLLED 20% DEET SAWYERS [Suspect]
     Indication: PROPHYLAXIS
     Dosage: 20% DEET BID TOPICAL
     Route: 061
     Dates: start: 20040622, end: 20040702

REACTIONS (2)
  - APPLICATION SITE ANAESTHESIA [None]
  - HYPOAESTHESIA [None]
